FAERS Safety Report 9618403 (Version 3)
Quarter: 2014Q2

REPORT INFORMATION
  Report Type: Spontaneous
  Country: GB (occurrence: GB)
  Receive Date: 20131014
  Receipt Date: 20140402
  Transmission Date: 20141212
  Serious: Yes (Disabling, Other)
  Sender: FDA-Public Use
  Company Number: GB-RANBAXY-2013R1-73978

PATIENT
  Age: 28 Year
  Sex: Female
  Weight: 98.42 kg

DRUGS (2)
  1. SERTRALINE [Suspect]
     Indication: ANXIETY
     Dosage: UNK
     Route: 048
     Dates: start: 201301, end: 2013
  2. PROPANOL [Concomitant]
     Indication: PRODUCT USED FOR UNKNOWN INDICATION
     Route: 065

REACTIONS (8)
  - Mood swings [Recovered/Resolved]
  - Crying [Recovered/Resolved]
  - Self-injurious ideation [Recovered/Resolved]
  - Anxiety [Recovered/Resolved]
  - Panic attack [Recovered/Resolved]
  - Euphoric mood [Recovered/Resolved]
  - Dissociation [Recovered/Resolved]
  - Energy increased [Recovered/Resolved]
